FAERS Safety Report 5072361-4 (Version None)
Quarter: 2006Q3

REPORT INFORMATION
  Report Type: 
  Country: None (occurrence: None)
  Receive Date: 20060710
  Receipt Date: 20051221
  Transmission Date: 20061208
  Serious: Yes (Other)
  Sender: FDA-Public Use
  Company Number: PHEH2005US10952

PATIENT
  Age: 73 Year
  Sex: Male

DRUGS (5)
  1. GLEEVEC [Suspect]
     Indication: CHRONIC MYELOID LEUKAEMIA
     Dosage: 400 MG, QD, ORAL
     Route: 048
     Dates: start: 20040910, end: 20050316
  2. CALCIUM W/VITAMIN D NOS (CALCIUM, VITAMIN D NOS) [Concomitant]
  3. ASCORBIC ACID [Concomitant]
  4. GLUCOSAMINE (GLUCOSAMINE) [Concomitant]
  5. CELEBREX [Concomitant]

REACTIONS (7)
  - BLOOD BILIRUBIN INCREASED [None]
  - CHRONIC HEPATITIS [None]
  - HEPATIC FAILURE [None]
  - INTERNATIONAL NORMALISED RATIO INCREASED [None]
  - LIVER DISORDER [None]
  - LIVER FUNCTION TEST ABNORMAL [None]
  - PERIORBITAL OEDEMA [None]
